FAERS Safety Report 8054811-4 (Version None)
Quarter: 2012Q1

REPORT INFORMATION
  Report Type: 
  Country: None (occurrence: None)
  Receive Date: 20120119
  Receipt Date: 20120105
  Transmission Date: 20120608
  Serious: Yes (Hospitalization)
  Sender: FDA-Public Use
  Company Number: CA-JNJFOC-20120106630

PATIENT
  Sex: Female
  Weight: 47.63 kg

DRUGS (9)
  1. REMICADE [Suspect]
     Indication: CROHN'S DISEASE
     Route: 042
     Dates: start: 20100225
  2. PROBIOTIC [Concomitant]
     Dosage: DOSE: 1 PACKET ONE DAY
     Route: 065
  3. SINGULAIR [Concomitant]
     Route: 065
  4. MAXALT [Concomitant]
     Route: 065
  5. CIPROFLOXACIN [Concomitant]
     Route: 065
  6. NEXIUM [Concomitant]
     Route: 065
  7. CELEBREX [Concomitant]
     Route: 065
  8. ELAVIL [Concomitant]
     Route: 065
  9. CALCIUM WITH VITAMIN C [Concomitant]
     Route: 065

REACTIONS (1)
  - SURGERY [None]
